FAERS Safety Report 6265074-4 (Version None)
Quarter: 2009Q3

REPORT INFORMATION
  Report Type: 
  Country: None (occurrence: None)
  Receive Date: 20090713
  Receipt Date: 20090701
  Transmission Date: 20100115
  Serious: Yes (Other)
  Sender: FDA-Public Use
  Company Number: GB-PFIZER INC-2009234599

PATIENT
  Age: 62 Year

DRUGS (1)
  1. ARTHROTEC [Suspect]
     Indication: BACK PAIN
     Dosage: UNK
     Route: 048
     Dates: start: 20090611, end: 20090615

REACTIONS (3)
  - ARRHYTHMIA [None]
  - MUSCULOSKELETAL STIFFNESS [None]
  - PARAESTHESIA [None]
